FAERS Safety Report 6765099-6 (Version None)
Quarter: 2010Q2

REPORT INFORMATION
  Report Type: 
  Country: None (occurrence: None)
  Receive Date: 20100610
  Receipt Date: 20100601
  Transmission Date: 20101027
  Serious: Yes (Hospitalization)
  Sender: FDA-Public Use
  Company Number: DE-AMGEN-US384477

PATIENT
  Sex: Female
  Weight: 71 kg

DRUGS (1)
  1. ENBREL [Suspect]
     Indication: PSORIATIC ARTHROPATHY
     Route: 058
     Dates: start: 20090218

REACTIONS (7)
  - CONDITION AGGRAVATED [None]
  - FLANK PAIN [None]
  - NAUSEA [None]
  - PELVI-URETERIC OBSTRUCTION [None]
  - PSORIATIC ARTHROPATHY [None]
  - SCAR [None]
  - URINARY HESITATION [None]
